FAERS Safety Report 20570703 (Version 1)
Quarter: 2022Q1

REPORT INFORMATION
  Report Type: Spontaneous
  Country: IT (occurrence: IT)
  Receive Date: 20220309
  Receipt Date: 20220309
  Transmission Date: 20220424
  Serious: Yes (Hospitalization, Other)
  Sender: FDA-Public Use
  Company Number: IT-ABBVIE-22K-083-4305484-00

PATIENT
  Age: 74 Year
  Sex: Female

DRUGS (4)
  1. VALPROIC ACID [Suspect]
     Active Substance: VALPROIC ACID
     Indication: Product administration error
     Route: 048
     Dates: start: 20191101, end: 20191101
  2. DIAZEPAM [Suspect]
     Active Substance: DIAZEPAM
     Indication: Product administration error
     Route: 048
     Dates: start: 20191101, end: 20191101
  3. CLOZAPINE [Suspect]
     Active Substance: CLOZAPINE
     Indication: Product administration error
     Route: 048
     Dates: start: 20191101, end: 20191101
  4. HALOPERIDOL [Suspect]
     Active Substance: HALOPERIDOL
     Indication: Product administration error
     Route: 048
     Dates: start: 20191101, end: 20191101

REACTIONS (2)
  - Prescription drug used without a prescription [Unknown]
  - Coma [Recovered/Resolved]

NARRATIVE: CASE EVENT DATE: 20191101
